FAERS Safety Report 20741994 (Version 2)
Quarter: 2022Q2

REPORT INFORMATION
  Report Type: Spontaneous
  Country: JP (occurrence: JP)
  Receive Date: 20220423
  Receipt Date: 20220513
  Transmission Date: 20220721
  Serious: Yes (Death, Hospitalization, Disabling, Other)
  Sender: FDA-Public Use
  Company Number: JP-AMGEN-JPNSP2022062209

PATIENT
  Age: 96 Year
  Sex: Female
  Weight: 45 kg

DRUGS (4)
  1. EVENITY [Suspect]
     Active Substance: ROMOSOZUMAB-AQQG
     Indication: Osteoporosis
     Dosage: 210 MILLIGRAM, QMO
     Route: 058
     Dates: start: 20210321, end: 20210818
  2. TELMISARTAN [Concomitant]
     Active Substance: TELMISARTAN
     Indication: Hypertension
     Dosage: 20 MILLIGRAM, QD
  3. LAGNOS NF [Concomitant]
     Indication: Constipation
     Dosage: 12 GRAM, QD
  4. ELDECALCITOL [Concomitant]
     Active Substance: ELDECALCITOL
     Dosage: UNK
     Dates: start: 20210520, end: 20210825

REACTIONS (3)
  - Pneumonia [Fatal]
  - Ischaemic cerebral infarction [Recovered/Resolved with Sequelae]
  - Staphylococcus test positive [Unknown]

NARRATIVE: CASE EVENT DATE: 20210101
